FAERS Safety Report 17520265 (Version 1)
Quarter: 2020Q1

REPORT INFORMATION
  Report Type: Spontaneous
  Country: US (occurrence: US)
  Receive Date: 20200228
  Receipt Date: 20200228
  Transmission Date: 20200409
  Serious: No
  Sender: FDA-Public Use
  Company Number: None

PATIENT
  Age: 9 Year
  Sex: Male
  Weight: 22.68 kg

DRUGS (2)
  1. FLONASE [Suspect]
     Active Substance: FLUTICASONE PROPIONATE
  2. ZYRTEC [Suspect]
     Active Substance: CETIRIZINE HYDROCHLORIDE
     Indication: HYPERSENSITIVITY
     Route: 048
     Dates: start: 20190516, end: 20190606

REACTIONS (6)
  - Defiant behaviour [None]
  - Anger [None]
  - Apathy [None]
  - Pruritus [None]
  - Withdrawal syndrome [None]
  - Aggression [None]

NARRATIVE: CASE EVENT DATE: 20190518
